FAERS Safety Report 22068644 (Version 1)
Quarter: 2023Q1

REPORT INFORMATION
  Report Type: Spontaneous
  Country: US (occurrence: None)
  Receive Date: 20230306
  Receipt Date: 20230306
  Transmission Date: 20230418
  Serious: Yes (Hospitalization)
  Sender: FDA-Public Use
  Company Number: None

PATIENT
  Age: 77 Year
  Sex: Male

DRUGS (1)
  1. KYMRIAH [Suspect]
     Active Substance: TISAGENLECLEUCEL
     Indication: Diffuse large B-cell lymphoma

REACTIONS (4)
  - Immune effector cell-associated neurotoxicity syndrome [None]
  - Electroencephalogram abnormal [None]
  - Protein total increased [None]
  - Azotaemia [None]

NARRATIVE: CASE EVENT DATE: 20221206
